FAERS Safety Report 7476242-8 (Version None)
Quarter: 2011Q2

REPORT INFORMATION
  Report Type: 
  Country: None (occurrence: None)
  Receive Date: 20110512
  Receipt Date: 20110217
  Transmission Date: 20111010
  Serious: Yes (Other)
  Sender: FDA-Public Use
  Company Number: PHHY2011US14849

PATIENT
  Sex: Male

DRUGS (3)
  1. FANAPT [Suspect]
     Dosage: 8 MG, BID
  2. VICODIN [Concomitant]
  3. MOBIC [Concomitant]

REACTIONS (1)
  - MYOCARDIAL INFARCTION [None]
